FAERS Safety Report 13793682 (Version 1)
Quarter: 2017Q3

REPORT INFORMATION
  Report Type: Spontaneous
  Country: FR (occurrence: FR)
  Receive Date: 20170726
  Receipt Date: 20170726
  Transmission Date: 20171127
  Serious: Yes (Other)
  Sender: FDA-Public Use
  Company Number: FR-PFIZER INC-2017316719

PATIENT
  Age: 56 Year
  Sex: Female

DRUGS (5)
  1. PROPANOLOL /00030001/ [Concomitant]
     Active Substance: PROPRANOLOL HYDROCHLORIDE
  2. ARACYTINE [Suspect]
     Active Substance: CYTARABINE
     Indication: MYELOID LEUKAEMIA
     Dosage: UNK, CYCLIC
     Route: 041
     Dates: start: 20140328
  3. ARIXTRA [Concomitant]
     Active Substance: FONDAPARINUX SODIUM
  4. CERUBIDINE [Suspect]
     Active Substance: DAUNORUBICIN HYDROCHLORIDE
     Indication: MYELOID LEUKAEMIA
     Dosage: 90 MG, DAILY
     Route: 041
     Dates: start: 20140328, end: 20140330
  5. METFORMINE [Concomitant]
     Active Substance: METFORMIN HYDROCHLORIDE

REACTIONS (1)
  - Palmar-plantar erythrodysaesthesia syndrome [Recovered/Resolved]

NARRATIVE: CASE EVENT DATE: 20140402
